FAERS Safety Report 24304950 (Version 1)
Quarter: 2024Q3

REPORT INFORMATION
  Report Type: Spontaneous
  Country: SI (occurrence: SI)
  Receive Date: 20240911
  Receipt Date: 20240911
  Transmission Date: 20241016
  Serious: Yes (Death, Life-Threatening, Hospitalization)
  Sender: STRIDES
  Company Number: SI-STRIDES ARCOLAB LIMITED-2024SP011459

PATIENT
  Age: 69 Year
  Sex: Male

DRUGS (22)
  1. HYDROCORTISONE [Suspect]
     Active Substance: HYDROCORTISONE\HYDROCORTISONE ACETATE
     Indication: Acute respiratory failure
     Dosage: UNK
     Route: 065
  2. POTASSIUM CHLORIDE [Suspect]
     Active Substance: POTASSIUM CHLORIDE
     Indication: Hypokalaemia
     Dosage: UNK
     Route: 065
  3. MORPHINE SULFATE [Suspect]
     Active Substance: MORPHINE SULFATE
     Indication: Pain
     Dosage: 2 MILLIGRAM
     Route: 065
  4. TENOFOVIR DISOPROXIL FUMARATE [Suspect]
     Active Substance: TENOFOVIR DISOPROXIL FUMARATE
     Indication: Hepatitis B
     Dosage: 25 MILLIGRAM
     Route: 048
  5. MEROPENEM [Suspect]
     Active Substance: MEROPENEM
     Indication: Pneumonia
     Dosage: UNK
     Route: 065
  6. PIPERACILLIN SODIUM\TAZOBACTAM SODIUM [Suspect]
     Active Substance: PIPERACILLIN SODIUM\TAZOBACTAM SODIUM
     Indication: Pneumonia
     Dosage: UNK
     Route: 065
  7. TAZOBACTAM [Suspect]
     Active Substance: TAZOBACTAM
     Indication: Pneumonia
     Dosage: 4.5 GRAM
     Route: 065
  8. VANCOMYCIN [Suspect]
     Active Substance: VANCOMYCIN
     Indication: Pneumonia
     Dosage: 1 GRAM
     Route: 042
  9. ACETAMINOPHEN [Suspect]
     Active Substance: ACETAMINOPHEN
     Indication: Pain
     Dosage: 1 MILLIGRAM
     Route: 065
  10. ALBUTEROL [Concomitant]
     Active Substance: ALBUTEROL
     Indication: Chronic obstructive pulmonary disease
     Dosage: 5 MILLIGRAM PER MILLILITRE
     Route: 042
  11. NOREPINEPHRINE [Concomitant]
     Active Substance: NOREPINEPHRINE\NOREPINEPHRINE BITARTRATE
     Indication: Hypotension
     Dosage: 10 MILLIGRAM
     Route: 065
  12. LANDIOLOL [Concomitant]
     Active Substance: LANDIOLOL
     Indication: Tachycardia
     Dosage: UNK
     Route: 065
  13. FENOTEROL\IPRATROPIUM BROMIDE [Concomitant]
     Active Substance: FENOTEROL\IPRATROPIUM BROMIDE
     Indication: Chronic obstructive pulmonary disease
     Dosage: UNK (RECEIVED 0.5MG/0.261 MG/ML)
  14. SPIRONOLACTONE [Concomitant]
     Active Substance: SPIRONOLACTONE
     Indication: Cardiac failure
     Dosage: 25 MILLIGRAM
     Route: 048
  15. FUROSEMIDE [Concomitant]
     Active Substance: FUROSEMIDE
     Indication: Acute kidney injury
     Dosage: 40 MILLIGRAM
     Route: 042
  16. MAGNESIUM SULFATE [Concomitant]
     Active Substance: MAGNESIUM SULFATE\MAGNESIUM SULFATE HEPTAHYDRATE
     Indication: Supportive care
     Dosage: 10 MILLIMOLE
     Route: 042
  17. PANTOPRAZOLE [Concomitant]
     Active Substance: PANTOPRAZOLE
     Indication: Supportive care
     Dosage: 40 MILLIGRAM
     Route: 042
  18. THIETHYLPERAZINE [Concomitant]
     Active Substance: THIETHYLPERAZINE
     Indication: Supportive care
     Dosage: 6.5 MILLIGRAM
     Route: 042
  19. CLEMASTINE [Concomitant]
     Active Substance: CLEMASTINE
     Indication: Supportive care
     Dosage: 2 MILLIGRAM
     Route: 042
  20. BISACODYL [Concomitant]
     Active Substance: BISACODYL
     Indication: Supportive care
     Dosage: 10 MILLIGRAM
     Route: 065
  21. MIDAZOLAM [Concomitant]
     Active Substance: MIDAZOLAM
     Indication: Supportive care
     Dosage: UNK
     Route: 065
  22. PROPOFOL [Concomitant]
     Active Substance: PROPOFOL
     Indication: Sedation
     Dosage: UNK
     Route: 065

REACTIONS (1)
  - Therapy non-responder [Fatal]
